FAERS Safety Report 22103839 (Version 1)
Quarter: 2023Q1

REPORT INFORMATION
  Report Type: Spontaneous
  Country: US (occurrence: US)
  Receive Date: 20230316
  Receipt Date: 20230316
  Transmission Date: 20230418
  Serious: Yes (Other)
  Sender: FDA-Public Use
  Company Number: US-FreseniusKabi-FK202303341

PATIENT
  Age: 34 Month
  Sex: Male

DRUGS (7)
  1. DOXORUBICIN [Suspect]
     Active Substance: DOXORUBICIN
     Indication: Rhabdoid tumour of the kidney
  2. ETOPOSIDE [Suspect]
     Active Substance: ETOPOSIDE
     Indication: Rhabdoid tumour of the kidney
  3. METHOTREXATE [Suspect]
     Active Substance: METHOTREXATE
     Indication: Rhabdoid tumour of the kidney
     Dosage: HIGH DOSE
  4. CARBOPLATIN [Suspect]
     Active Substance: CARBOPLATIN
     Indication: Rhabdoid tumour of the kidney
  5. IRINOTECAN [Suspect]
     Active Substance: IRINOTECAN
     Indication: Rhabdoid tumour of the kidney
  6. VINCRISTINE [Suspect]
     Active Substance: VINCRISTINE
     Indication: Rhabdoid tumour of the kidney
  7. CYCLOPHOSPHAMIDE [Suspect]
     Active Substance: CYCLOPHOSPHAMIDE
     Indication: Rhabdoid tumour of the kidney
     Dosage: DAYS 22?42
     Route: 048

REACTIONS (1)
  - Myeloid metaplasia [Unknown]
